FAERS Safety Report 6357684-0 (Version None)
Quarter: 2009Q3

REPORT INFORMATION
  Report Type: 
  Country: None (occurrence: None)
  Receive Date: 20090916
  Receipt Date: 20090911
  Transmission Date: 20100115
  Serious: Yes (Life-Threatening)
  Sender: FDA-Public Use
  Company Number: DE-BRISTOL-MYERS SQUIBB COMPANY-14727945

PATIENT
  Age: 35 Year
  Sex: Female
  Weight: 61 kg

DRUGS (4)
  1. PACLITAXEL [Suspect]
     Indication: BREAST CANCER
  2. CYCLOPHOSPHAMIDE [Suspect]
     Indication: BREAST CANCER
  3. TRASTUZUMAB [Suspect]
     Indication: BREAST CANCER
  4. EPIRUBICIN [Suspect]
     Indication: BREAST CANCER

REACTIONS (1)
  - DYSTHYMIC DISORDER [None]
